FAERS Safety Report 10908191 (Version 2)
Quarter: 2016Q1

REPORT INFORMATION
  Report Type: Spontaneous
  Country: US (occurrence: US)
  Receive Date: 20150312
  Receipt Date: 20160329
  Transmission Date: 20160525
  Serious: No
  Sender: FDA-Public Use
  Company Number: US-MALLINCKRODT-T201501355

PATIENT
  Age: 30 Year
  Sex: Female
  Weight: 104 kg

DRUGS (9)
  1. ALLEGRA [Concomitant]
     Active Substance: FEXOFENADINE HYDROCHLORIDE
  2. VICODIN [Concomitant]
     Active Substance: ACETAMINOPHEN\HYDROCODONE BITARTRATE
  3. XARTEMIS XR [Suspect]
     Active Substance: ACETAMINOPHEN\OXYCODONE HYDROCHLORIDE
     Indication: PROCEDURAL PAIN
     Dosage: 7.5/325 MG, 2 TABLETS, Q12H
     Route: 048
     Dates: start: 20140711, end: 20140712
  4. PRILOSEC [Concomitant]
     Active Substance: OMEPRAZOLE MAGNESIUM
  5. AMITRIPTYLINE [Concomitant]
     Active Substance: AMITRIPTYLINE
  6. ULTRAM [Concomitant]
     Active Substance: TRAMADOL HYDROCHLORIDE
  7. ZOVIA [Concomitant]
     Active Substance: ETHINYL ESTRADIOL\ETHYNODIOL DIACETATE
  8. ALBUTEROL. [Concomitant]
     Active Substance: ALBUTEROL
  9. CELEBREX [Concomitant]
     Active Substance: CELECOXIB

REACTIONS (2)
  - Feeling abnormal [Unknown]
  - Disorientation [Unknown]

NARRATIVE: CASE EVENT DATE: 20140711
